FAERS Safety Report 7910883-6 (Version None)
Quarter: 2011Q4

REPORT INFORMATION
  Report Type: 
  Country: None (occurrence: None)
  Receive Date: 20111114
  Receipt Date: 20111102
  Transmission Date: 20120403
  Serious: No
  Sender: FDA-Public Use
  Company Number: US-BIOGENIDEC-2010BI030206

PATIENT
  Age: 45 Year
  Sex: Female

DRUGS (3)
  1. TYSABRI [Suspect]
     Route: 042
     Dates: start: 20100702
  2. AVONEX [Concomitant]
     Indication: MULTIPLE SCLEROSIS
     Route: 030
  3. TYSABRI [Suspect]
     Indication: MULTIPLE SCLEROSIS
     Route: 042
     Dates: start: 20071001, end: 20090910

REACTIONS (10)
  - FALL [None]
  - MEMORY IMPAIRMENT [None]
  - DIZZINESS [None]
  - DEPRESSION [None]
  - ABNORMAL DREAMS [None]
  - PARAESTHESIA [None]
  - BALANCE DISORDER [None]
  - DECREASED APPETITE [None]
  - HYPERSOMNIA [None]
  - NAUSEA [None]
